FAERS Safety Report 16665945 (Version 2)
Quarter: 2019Q3

REPORT INFORMATION
  Report Type: Spontaneous
  Country: US (occurrence: US)
  Receive Date: 20190804
  Receipt Date: 20190821
  Transmission Date: 20191004
  Serious: Yes (Other)
  Sender: FDA-Public Use
  Company Number: US-JNJFOC-20190802086

PATIENT
  Sex: Male
  Weight: 72.64 kg

DRUGS (1)
  1. NEUTROGENA OIL FREE ACNE WASH [Suspect]
     Active Substance: SALICYLIC ACID
     Indication: ACNE
     Dosage: USED AT NIGHT, THEN AGAIN IN MORNING
     Route: 061

REACTIONS (3)
  - Application site swelling [Recovering/Resolving]
  - Application site vesicles [Recovering/Resolving]
  - Dyspnoea [Recovered/Resolved]
